FAERS Safety Report 15121419 (Version 2)
Quarter: 2019Q2

REPORT INFORMATION
  Report Type: Spontaneous
  Country: US (occurrence: US)
  Receive Date: 20180709
  Receipt Date: 20190426
  Transmission Date: 20190711
  Serious: Yes (Other)
  Sender: FDA-Public Use
  Company Number: US-SA-2017SA263636

PATIENT
  Age: 39 Year
  Sex: Female

DRUGS (7)
  1. TAXOTERE [Suspect]
     Active Substance: DOCETAXEL
     Dosage: 140 MG, Q3W
     Route: 042
     Dates: start: 20101027, end: 20101027
  2. ADRIAMYCIN [Concomitant]
     Active Substance: DOXORUBICIN HYDROCHLORIDE
     Dosage: 94 MG
     Route: 042
  3. NORMAL SALINE [Concomitant]
     Active Substance: SODIUM CHLORIDE
     Dosage: 250 CC
     Route: 042
  4. ALOXI [Concomitant]
     Active Substance: PALONOSETRON HYDROCHLORIDE
     Dosage: 0.25 MG
     Route: 042
  5. DECADRON [Concomitant]
     Active Substance: DEXAMETHASONE
     Dosage: 20 MG
     Route: 042
  6. TAXOTERE [Suspect]
     Active Substance: DOCETAXEL
     Indication: BREAST CANCER FEMALE
     Dosage: 140 MG, Q3W
     Route: 042
     Dates: start: 20100804, end: 20100804
  7. CYTOXAN [Concomitant]
     Active Substance: CYCLOPHOSPHAMIDE
     Dosage: 945 MG
     Route: 042

REACTIONS (6)
  - Impaired quality of life [Unknown]
  - Psychological trauma [Unknown]
  - Pain [Unknown]
  - Emotional distress [Unknown]
  - Anxiety [Unknown]
  - Alopecia [Recovering/Resolving]

NARRATIVE: CASE EVENT DATE: 201008
